FAERS Safety Report 10376117 (Version 1)
Quarter: 2014Q3

REPORT INFORMATION
  Report Type: Spontaneous
  Country: FR (occurrence: FR)
  Receive Date: 20140811
  Receipt Date: 20140811
  Transmission Date: 20150326
  Serious: Yes (Hospitalization, Other)
  Sender: FDA-Public Use
  Company Number: FR-ELI_LILLY_AND_COMPANY-FR201408000345

PATIENT
  Age: 58 Year
  Sex: Male

DRUGS (19)
  1. KARDEGIC [Concomitant]
     Active Substance: ASPIRIN LYSINE
     Dosage: 75 MG, QD
  2. INEXIUM                            /01479302/ [Concomitant]
     Active Substance: ESOMEPRAZOLE MAGNESIUM
     Dosage: 20 MG, QD
  3. LASILIX                            /00032601/ [Concomitant]
     Active Substance: FUROSEMIDE
     Dosage: 40 MG, QD
  4. ZELITREX [Concomitant]
     Active Substance: VALACYCLOVIR HYDROCHLORIDE
     Dosage: 100 MG, QD
  5. COUMADINE [Concomitant]
     Active Substance: WARFARIN SODIUM
     Dosage: 6 MG, QD
  6. TOBRADEX [Concomitant]
     Active Substance: DEXAMETHASONE\TOBRAMYCIN
     Dosage: 6 DF, EACH MORNING
  7. LANTUS [Suspect]
     Active Substance: INSULIN GLARGINE
     Indication: TYPE 2 DIABETES MELLITUS
     Dosage: 24 IU, EACH EVENING
     Route: 058
     Dates: end: 20140626
  8. HUMALOG [Suspect]
     Active Substance: INSULIN LISPRO
     Dosage: 10 U, TID
     Route: 058
     Dates: start: 20140627
  9. PARACETAMOL [Concomitant]
     Active Substance: ACETAMINOPHEN
     Dosage: 4 G, QD
  10. TARDYFERON [Concomitant]
     Active Substance: FERROUS SULFATE\FOLIC ACID
     Dosage: 160 MG, QD
  11. TAHOR [Concomitant]
     Active Substance: ATORVASTATIN CALCIUM
     Dosage: 80 MG, QD
  12. METFORMINE [Concomitant]
     Active Substance: METFORMIN HYDROCHLORIDE
     Dosage: 1500 MG, QD
  13. XATRAL [Concomitant]
     Active Substance: ALFUZOSIN
     Dosage: 10 MG, QD
  14. TRIATEC                            /00885601/ [Concomitant]
     Active Substance: RAMIPRIL
     Dosage: 2.5 MG, QD
  15. ATROPINE [Concomitant]
     Active Substance: ATROPINE
     Dosage: 1 DF, EACH MORNING
  16. SPECIAFOLDINE [Concomitant]
     Active Substance: FOLIC ACID
     Dosage: 5 MG, QD
  17. HUMALOG [Suspect]
     Active Substance: INSULIN LISPRO
     Indication: TYPE 2 DIABETES MELLITUS
     Dosage: 16 IU, TID
     Route: 058
     Dates: end: 20140626
  18. LANTUS [Suspect]
     Active Substance: INSULIN GLARGINE
     Dosage: 18 U, EACH EVENING
     Route: 058
     Dates: start: 20140627
  19. TOPALGIC                           /00599202/ [Concomitant]
     Active Substance: TRAMADOL
     Dosage: 1 DF, BID

REACTIONS (5)
  - Pericardial effusion [Unknown]
  - Hypoglycaemic coma [Recovered/Resolved]
  - Cardiac tamponade [Unknown]
  - Blood glucose decreased [Unknown]
  - Cholestasis [Unknown]

NARRATIVE: CASE EVENT DATE: 20140626
